FAERS Safety Report 6223280-9 (Version None)
Quarter: 2009Q2

REPORT INFORMATION
  Report Type: 
  Country: None (occurrence: None)
  Receive Date: 20090611
  Receipt Date: 20090601
  Transmission Date: 20091009
  Serious: Yes (Other)
  Sender: FDA-Public Use
  Company Number: US-ELI_LILLY_AND_COMPANY-US200904000160

PATIENT
  Sex: Female

DRUGS (5)
  1. HUMALOG [Suspect]
     Indication: DIABETES MELLITUS
     Route: 058
  2. HUMULIN N [Suspect]
     Dates: start: 19820101, end: 20070101
  3. HUMULIN R [Suspect]
  4. PERCOCET [Concomitant]
     Indication: MUSCULOSKELETAL PAIN
  5. TYLENOL W/ CODEINE NO. 4 [Concomitant]
     Indication: FIBROMYALGIA
     Dosage: UNK, AS NEEDED

REACTIONS (13)
  - BLINDNESS UNILATERAL [None]
  - BLOOD GLUCOSE DECREASED [None]
  - DIABETIC RETINOPATHY [None]
  - DRUG EXPOSURE DURING PREGNANCY [None]
  - EYE HAEMORRHAGE [None]
  - FALL [None]
  - HYPOGLYCAEMIA [None]
  - INJURY [None]
  - JOINT RANGE OF MOTION DECREASED [None]
  - MUSCULOSKELETAL PAIN [None]
  - RETINAL DETACHMENT [None]
  - RETINAL SCAR [None]
  - UPPER LIMB FRACTURE [None]
